FAERS Safety Report 19467701 (Version 1)
Quarter: 2021Q2

REPORT INFORMATION
  Report Type: Spontaneous
  Country: US (occurrence: US)
  Receive Date: 20210628
  Receipt Date: 20210628
  Transmission Date: 20210717
  Serious: No
  Sender: FDA-Public Use
  Company Number: None

PATIENT
  Age: 55 Year
  Sex: Female

DRUGS (2)
  1. PROMACTA [Suspect]
     Active Substance: ELTROMBOPAG OLAMINE
     Indication: HAEMORRHAGE
     Route: 048
     Dates: start: 201901
  2. PROMACTA [Suspect]
     Active Substance: ELTROMBOPAG OLAMINE
     Indication: ANTIPHOSPHOLIPID ANTIBODIES
     Route: 048
     Dates: start: 201901

REACTIONS (1)
  - Off label use [None]

NARRATIVE: CASE EVENT DATE: 20210628
